FAERS Safety Report 8147530-7 (Version None)
Quarter: 2012Q1

REPORT INFORMATION
  Report Type: 
  Country: None (occurrence: None)
  Receive Date: 20120218
  Receipt Date: 20110222
  Transmission Date: 20120608
  Serious: No
  Sender: FDA-Public Use
  Company Number: US-ALLERGAN-1102567US

PATIENT
  Sex: Female

DRUGS (2)
  1. BOTOX COSMETIC [Suspect]
     Indication: SKIN WRINKLING
     Dosage: 36 UNITS, SINGLE
     Dates: start: 20101101, end: 20101101
  2. BOTOX COSMETIC [Suspect]
     Dosage: 17 UNITS, SINGLE
     Dates: start: 20101201, end: 20101201

REACTIONS (3)
  - SUBCUTANEOUS ABSCESS [None]
  - DRUG INEFFECTIVE [None]
  - HEADACHE [None]
